FAERS Safety Report 5156287-3 (Version None)
Quarter: 2006Q4

REPORT INFORMATION
  Report Type: 
  Country: None (occurrence: None)
  Receive Date: 20061122
  Receipt Date: 20061011
  Transmission Date: 20070319
  Serious: Yes (Other)
  Sender: FDA-Public Use
  Company Number: US-GLAXOSMITHKLINE-A0623225A

PATIENT
  Age: 71 Year
  Sex: Female

DRUGS (2)
  1. PARNATE [Suspect]
     Indication: DEPRESSION
     Dosage: 60MG PER DAY
     Route: 048
  2. SEROQUEL [Concomitant]

REACTIONS (10)
  - CANDIDIASIS [None]
  - CHOKING [None]
  - DRY MOUTH [None]
  - DYSPHAGIA [None]
  - HYPERTENSION [None]
  - HYPOTENSION [None]
  - MUCOSAL INFLAMMATION [None]
  - SENSATION OF FOREIGN BODY [None]
  - SWELLING [None]
  - SWOLLEN TONGUE [None]
